FAERS Safety Report 14476919 (Version 1)
Quarter: 2018Q1

REPORT INFORMATION
  Report Type: Report from Study
  Country: US (occurrence: US)
  Receive Date: 20180201
  Receipt Date: 20180201
  Transmission Date: 20180509
  Serious: No
  Sender: FDA-Public Use
  Company Number: US-EXELIXIS-CABO-17009585

PATIENT
  Sex: Female
  Weight: 78.46 kg

DRUGS (15)
  1. METRONIDAZOLE. [Concomitant]
     Active Substance: METRONIDAZOLE
  2. HYDRALAZINE [Concomitant]
     Active Substance: HYDRALAZINE HYDROCHLORIDE
  3. TYLENOL [Concomitant]
     Active Substance: ACETAMINOPHEN
  4. OMEPRAZOLE. [Concomitant]
     Active Substance: OMEPRAZOLE
  5. BIOTIN [Concomitant]
     Active Substance: BIOTIN
  6. FOLIC ACID. [Concomitant]
     Active Substance: FOLIC ACID
  7. OXYCODONE AND ACETAMINOPHEN [Concomitant]
     Active Substance: ACETAMINOPHEN\OXYCODONE HYDROCHLORIDE
  8. CABOMETYX [Suspect]
     Active Substance: CABOZANTINIB S-MALATE
     Indication: RENAL CELL CARCINOMA
     Dosage: 60 MG, QD
     Route: 048
     Dates: start: 20170324
  9. CIPROFLOXACIN. [Concomitant]
     Active Substance: CIPROFLOXACIN
  10. SENOKOT [Concomitant]
     Active Substance: SENNOSIDES
  11. VITAMIN B12 [Concomitant]
     Active Substance: CYANOCOBALAMIN
  12. CEFUROXIME. [Concomitant]
     Active Substance: CEFUROXIME
  13. ASPIRIN. [Concomitant]
     Active Substance: ASPIRIN
  14. PRILOSEC [Concomitant]
     Active Substance: OMEPRAZOLE MAGNESIUM
  15. AZITHROMYCIN ANHYDROUS. [Concomitant]
     Active Substance: AZITHROMYCIN ANHYDROUS

REACTIONS (3)
  - Abscess [Recovered/Resolved]
  - Breast neoplasm [Unknown]
  - Diverticulum [Recovered/Resolved]
